FAERS Safety Report 6570749-3 (Version None)
Quarter: 2010Q1

REPORT INFORMATION
  Report Type: 
  Country: None (occurrence: None)
  Receive Date: 20100204
  Receipt Date: 20091215
  Transmission Date: 20100710
  Serious: Yes (Hospitalization)
  Sender: FDA-Public Use
  Company Number: FR-EISAI INC.-E3810-03384-SPO-FR

PATIENT
  Sex: Male

DRUGS (12)
  1. PARIET (RABEPRAZOLE) [Suspect]
     Indication: PROPHYLAXIS AGAINST GASTROINTESTINAL ULCER
     Route: 048
     Dates: start: 20090822, end: 20090908
  2. NEXEN [Suspect]
     Indication: SCIATICA
     Route: 048
     Dates: start: 20090821
  3. NEXEN [Suspect]
  4. DEXTROPOXYPHENE [Suspect]
     Indication: SCIATICA
     Route: 048
     Dates: start: 20090821
  5. PARACETAMOL [Suspect]
     Indication: SCIATICA
     Route: 048
     Dates: start: 20090821
  6. TETRAZEPAM [Suspect]
     Indication: SCIATICA
     Route: 048
     Dates: start: 20090821
  7. KESTINLYO [Suspect]
     Indication: ASTHMA
     Route: 048
     Dates: start: 20090821
  8. RILMENIDINE [Concomitant]
  9. PROPRANOLOL [Concomitant]
  10. LIPANTHYL [Concomitant]
  11. ALBUTEROL [Concomitant]
     Indication: ASTHMA
  12. ECOBEC [Concomitant]
     Indication: ASTHMA

REACTIONS (2)
  - CHOLESTASIS [None]
  - CYTOLYTIC HEPATITIS [None]
